FAERS Safety Report 4654647-8 (Version None)
Quarter: 2005Q2

REPORT INFORMATION
  Report Type: 
  Country: None (occurrence: None)
  Receive Date: 20050504
  Receipt Date: 20050504
  Transmission Date: 20051028
  Serious: Yes (Other)
  Sender: FDA-Public Use
  Company Number: None

PATIENT
  Age: 56 Year
  Sex: Male
  Weight: 95.2554 kg

DRUGS (4)
  1. MERIDIA [Suspect]
     Indication: DIABETES MELLITUS
     Dosage: 15MG   DAILY   OROPHARING
  2. MERIDIA [Suspect]
     Indication: OBESITY
     Dosage: 15MG   DAILY   OROPHARING
  3. BENICAR [Concomitant]
  4. LIPITOR [Concomitant]

REACTIONS (3)
  - DYSPHORIA [None]
  - HEADACHE [None]
  - IRRITABILITY [None]
